FAERS Safety Report 15155936 (Version 1)
Quarter: 2018Q3

REPORT INFORMATION
  Report Type: Spontaneous
  Country: AU (occurrence: AU)
  Receive Date: 20180717
  Receipt Date: 20180717
  Transmission Date: 20181010
  Serious: Yes (Life-Threatening, Hospitalization, Other)
  Sender: FDA-Public Use
  Company Number: AU-US WORLDMEDS, LLC-STA_00019889

PATIENT
  Age: 65 Year
  Sex: Male

DRUGS (3)
  1. APOMORPHINE HYDROCHLORIDE [Suspect]
     Active Substance: APOMORPHINE HYDROCHLORIDE
     Indication: PARKINSON^S DISEASE
     Dosage: 3 MG Q1HR
     Route: 058
     Dates: start: 20080813, end: 20080821
  2. ENTACAPONE. [Concomitant]
     Active Substance: ENTACAPONE
     Indication: PARKINSON^S DISEASE
     Route: 048
  3. SINEMET [Concomitant]
     Active Substance: CARBIDOPA\LEVODOPA
     Indication: PARKINSON^S DISEASE
     Route: 048

REACTIONS (5)
  - Herpes zoster [Unknown]
  - Peripheral swelling [Unknown]
  - Dyspnoea [Unknown]
  - Rash [Unknown]
  - Tachycardia [Unknown]

NARRATIVE: CASE EVENT DATE: 20080820
